FAERS Safety Report 9463934 (Version 1)
Quarter: 2013Q3

REPORT INFORMATION
  Report Type: Spontaneous
  Country: None (occurrence: US)
  Receive Date: 20130819
  Receipt Date: 20130819
  Transmission Date: 20140515
  Serious: Yes (Hospitalization)
  Sender: FDA-Public Use
  Company Number: US-COVIDIEN/TYCO HEALTHCARE/MALLINCKRODT-T201304126

PATIENT
  Sex: Female

DRUGS (1)
  1. GABLOFEN [Suspect]
     Indication: MUSCLE SPASTICITY
     Dosage: 1330 MCG PER DAY
     Route: 037

REACTIONS (3)
  - General physical health deterioration [Unknown]
  - Musculoskeletal stiffness [Unknown]
  - Drug ineffective [Unknown]
